FAERS Safety Report 19718097 (Version 2)
Quarter: 2021Q3

REPORT INFORMATION
  Report Type: Spontaneous
  Country: CO (occurrence: CO)
  Receive Date: 20210819
  Receipt Date: 20210917
  Transmission Date: 20211014
  Serious: No
  Sender: FDA-Public Use
  Company Number: CO-AMGEN-COLSP2021124725

PATIENT
  Age: 68 Year
  Sex: Male

DRUGS (1)
  1. NEULASTA [Suspect]
     Active Substance: PEGFILGRASTIM
     Indication: PROPHYLAXIS
     Dosage: UNK, QMO
     Route: 065

REACTIONS (1)
  - Device malfunction [Unknown]

NARRATIVE: CASE EVENT DATE: 20210807
